FAERS Safety Report 9204805 (Version 1)
Quarter: 2013Q2

REPORT INFORMATION
  Report Type: Spontaneous
  Country: IT (occurrence: IT)
  Receive Date: 20130402
  Receipt Date: 20130402
  Transmission Date: 20140414
  Serious: Yes (Hospitalization)
  Sender: FDA-Public Use
  Company Number: IT-BRISTOL-MYERS SQUIBB COMPANY-18710319

PATIENT
  Age: 66 Year
  Sex: Female

DRUGS (5)
  1. KARVEZIDE [Suspect]
     Dosage: INTERR 9MAR13
     Dates: start: 20130101
  2. EUTIROX [Concomitant]
     Dosage: TABS
  3. LIMPIDEX [Concomitant]
     Dosage: CAPS
  4. EUTIROX [Concomitant]
     Dosage: TABS
  5. DIBASE [Concomitant]
     Dosage: 1DF= 25.000 IU/2.5 ML
     Route: 048

REACTIONS (4)
  - Vertigo [Recovering/Resolving]
  - Photophobia [Recovering/Resolving]
  - Dizziness [Recovering/Resolving]
  - Hypokalaemia [Recovering/Resolving]
